FAERS Safety Report 8405332 (Version 5)
Quarter: 2013Q2

REPORT INFORMATION
  Report Type: Report from Study
  Country: US (occurrence: US)
  Receive Date: 20120214
  Receipt Date: 20130524
  Transmission Date: 20140414
  Serious: Yes (Hospitalization)
  Sender: FDA-Public Use
  Company Number: US-JNJFOC-20120204863

PATIENT
  Age: 13 Year
  Sex: Female
  Weight: 31.1 kg

DRUGS (2)
  1. INFLIXIMAB, RECOMBINANT [Suspect]
     Indication: CROHN^S DISEASE
     Route: 042
     Dates: start: 20110627
  2. METHOTREXATE [Concomitant]

REACTIONS (1)
  - Crohn^s disease [Recovered/Resolved]
